FAERS Safety Report 8151299-X (Version None)
Quarter: 2012Q1

REPORT INFORMATION
  Report Type: 
  Country: None (occurrence: None)
  Receive Date: 20120220
  Receipt Date: 20120217
  Transmission Date: 20120608
  Serious: Yes (Hospitalization, Other)
  Sender: FDA-Public Use
  Company Number: GB-AMGEN-GBRSP2012010555

PATIENT
  Age: 79 Year
  Sex: Female

DRUGS (11)
  1. PROLIA [Suspect]
     Indication: OSTEOPOROSIS
     Dosage: 60 MG, Q6MO
     Route: 058
     Dates: start: 20120110, end: 20120110
  2. ACETAMINOPHEN AND CODEINE PHOSPHATE [Concomitant]
  3. OMEPRAZOLE [Concomitant]
  4. AMLODIPINE [Concomitant]
  5. FRUSEMIDE                          /00032601/ [Concomitant]
  6. SIMVASTATIN [Concomitant]
  7. FERROUS SULFATE TAB [Concomitant]
  8. LACTULOSE [Concomitant]
  9. HYDROXYZINE [Concomitant]
  10. ALFACALCIDOL [Concomitant]
  11. CALCIUM CARBONATE [Concomitant]

REACTIONS (2)
  - CONVULSION [None]
  - HYPOCALCAEMIA [None]
